FAERS Safety Report 6739267-3 (Version None)
Quarter: 2010Q2

REPORT INFORMATION
  Report Type: 
  Country: None (occurrence: None)
  Receive Date: 20100524
  Receipt Date: 20100524
  Transmission Date: 20101027
  Serious: Yes (Other)
  Sender: FDA-Public Use
  Company Number: None

PATIENT
  Sex: Female
  Weight: 131.0895 kg

DRUGS (1)
  1. LISINOPRIL [Suspect]

REACTIONS (1)
  - COUGH [None]
